FAERS Safety Report 12441478 (Version 1)
Quarter: 2016Q2

REPORT INFORMATION
  Report Type: Spontaneous
  Country: US (occurrence: US)
  Receive Date: 20160607
  Receipt Date: 20160607
  Transmission Date: 20160815
  Serious: No
  Sender: FDA-Public Use
  Company Number: US-PFIZER INC-2016266898

PATIENT
  Age: 79 Year
  Sex: Female

DRUGS (2)
  1. IBRANCE [Suspect]
     Active Substance: PALBOCICLIB
     Indication: BREAST CANCER
     Dosage: 100 MG, CYCLIC (DAILY FOR 21 DAYS ON/ 7 DAYS OFF)
     Route: 048
     Dates: start: 20160223
  2. FASLODEX [Concomitant]
     Active Substance: FULVESTRANT
     Dosage: UNK

REACTIONS (4)
  - Weight decreased [Unknown]
  - Eating disorder [Unknown]
  - Dysgeusia [Unknown]
  - Diarrhoea [Unknown]
